FAERS Safety Report 14668852 (Version 1)
Quarter: 2018Q1

REPORT INFORMATION
  Report Type: Spontaneous
  Country: GB (occurrence: GB)
  Receive Date: 20180322
  Receipt Date: 20180322
  Transmission Date: 20180509
  Serious: Yes (Hospitalization)
  Sender: FDA-Public Use
  Company Number: GB-AUROBINDO-AUR-APL-2018-016207

PATIENT
  Age: 53 Year
  Sex: Male

DRUGS (2)
  1. PHENYTOIN. [Suspect]
     Active Substance: PHENYTOIN
     Indication: EPILEPSY
     Dosage: 600 MILLIGRAM, DAILY
  2. PHENYTOIN. [Suspect]
     Active Substance: PHENYTOIN
     Dosage: 400 MILLIGRAM, DAILY

REACTIONS (4)
  - Drug prescribing error [Unknown]
  - Toxicity to various agents [Unknown]
  - Fall [Unknown]
  - Accidental overdose [Unknown]

NARRATIVE: CASE EVENT DATE: 201702
